FAERS Safety Report 25665815 (Version 2)
Quarter: 2025Q3

REPORT INFORMATION
  Report Type: Spontaneous
  Country: CN (occurrence: CN)
  Receive Date: 20250811
  Receipt Date: 20250826
  Transmission Date: 20251020
  Serious: Yes (Hospitalization)
  Sender: ELI LILLY AND COMPANY
  Company Number: CN-Merck Healthcare KGaA-2025039709

PATIENT
  Age: 47 Year
  Sex: Male
  Weight: 58 kg

DRUGS (10)
  1. ERBITUX [Suspect]
     Active Substance: CETUXIMAB
     Indication: Head and neck cancer metastatic
     Route: 041
     Dates: start: 20250621, end: 20250621
  2. ERBITUX [Suspect]
     Active Substance: CETUXIMAB
     Route: 041
     Dates: start: 20250630, end: 20250630
  3. GEMCITABINE HYDROCHLORIDE [Suspect]
     Active Substance: GEMCITABINE HYDROCHLORIDE
     Indication: Head and neck cancer metastatic
     Dosage: 1.6 G, DAILY
     Route: 041
     Dates: start: 20250624, end: 20250624
  4. GEMCITABINE HYDROCHLORIDE [Suspect]
     Active Substance: GEMCITABINE HYDROCHLORIDE
     Dosage: 1.6 G, DAILY
     Route: 041
     Dates: start: 20250701, end: 20250701
  5. CISPLATIN [Suspect]
     Active Substance: CISPLATIN
     Indication: Head and neck cancer metastatic
     Dosage: 65 MG, DAILY
     Route: 041
     Dates: start: 20250624, end: 20250625
  6. SODIUM CHLORIDE [Concomitant]
     Active Substance: SODIUM CHLORIDE
     Indication: Medication dilution
     Dosage: 350 ML, DAILY
     Route: 041
     Dates: start: 20250621, end: 20250621
  7. SODIUM CHLORIDE [Concomitant]
     Active Substance: SODIUM CHLORIDE
     Dosage: 100 ML, DAILY
     Route: 041
     Dates: start: 20250624, end: 20250624
  8. SODIUM CHLORIDE [Concomitant]
     Active Substance: SODIUM CHLORIDE
     Dosage: 500 ML, DAILY
     Route: 041
     Dates: start: 20250624, end: 20250625
  9. SODIUM CHLORIDE [Concomitant]
     Active Substance: SODIUM CHLORIDE
     Dosage: 350 ML, DAILY
     Route: 041
     Dates: start: 20250630, end: 20250630
  10. SODIUM CHLORIDE [Concomitant]
     Active Substance: SODIUM CHLORIDE
     Dosage: 100 ML, DAILY
     Route: 041
     Dates: start: 20250701, end: 20250701

REACTIONS (2)
  - Myelosuppression [Recovering/Resolving]
  - Off label use [Unknown]

NARRATIVE: CASE EVENT DATE: 20250715
